FAERS Safety Report 8296029-6 (Version None)
Quarter: 2012Q2

REPORT INFORMATION
  Report Type: 
  Country: None (occurrence: None)
  Receive Date: 20120418
  Receipt Date: 20120412
  Transmission Date: 20120825
  Serious: Yes (Other)
  Sender: FDA-Public Use
  Company Number: US-GLAXOSMITHKLINE-A0794729A

PATIENT
  Age: 23 Year
  Sex: Female
  Weight: 138.6 kg

DRUGS (2)
  1. AVANDIA [Suspect]
     Indication: DIABETES MELLITUS
     Dosage: 4MG PER DAY
     Route: 048
     Dates: start: 20050422, end: 20061201
  2. AVANDAMET [Suspect]
     Indication: TYPE 2 DIABETES MELLITUS
     Route: 048
     Dates: start: 20061201, end: 20070613

REACTIONS (4)
  - PALPITATIONS [None]
  - CHEST PAIN [None]
  - CARDIOMEGALY [None]
  - HEART VALVE INCOMPETENCE [None]
